FAERS Safety Report 5217575-5 (Version None)
Quarter: 2007Q1

REPORT INFORMATION
  Report Type: 
  Country: None (occurrence: None)
  Receive Date: 20070124
  Receipt Date: 20060410
  Transmission Date: 20070707
  Serious: No
  Sender: FDA-Public Use
  Company Number: US-GLAXOSMITHKLINE-A0601133A

PATIENT
  Age: 20 Year
  Sex: Female

DRUGS (3)
  1. PAXIL CR [Suspect]
     Indication: DEPRESSION
     Dosage: 12.5MG PER DAY
     Route: 048
     Dates: start: 20060407
  2. KLONOPIN [Concomitant]
  3. TYLENOL [Concomitant]

REACTIONS (9)
  - ABNORMAL DREAMS [None]
  - ANORGASMIA [None]
  - COLD SWEAT [None]
  - DRY MOUTH [None]
  - EYE PAIN [None]
  - FEELING ABNORMAL [None]
  - HEADACHE [None]
  - NAUSEA [None]
  - YAWNING [None]
